FAERS Safety Report 10179594 (Version 1)
Quarter: 2014Q2

REPORT INFORMATION
  Report Type: Spontaneous
  Country: US (occurrence: US)
  Receive Date: 20140519
  Receipt Date: 20140519
  Transmission Date: 20141212
  Serious: No
  Sender: FDA-Public Use
  Company Number: US-PFIZER INC-2014134897

PATIENT
  Age: 64 Year
  Sex: Female
  Weight: 81.63 kg

DRUGS (13)
  1. XELJANZ [Suspect]
     Indication: RHEUMATOID ARTHRITIS
     Dosage: 5 MG, 2X/DAY
     Dates: start: 20140501, end: 20140512
  2. CYMBALTA [Concomitant]
     Dosage: 3 MG, DAILY
  3. NORVASC [Concomitant]
     Dosage: 10 MG, DAILY
  4. METOPROLOL [Concomitant]
     Dosage: 25 MG, DAILY
  5. NUVIGIL [Concomitant]
     Dosage: 250 MG, DAILY
  6. LIPITOR [Concomitant]
     Dosage: 10 MG, DAILY
  7. LISINOPRIL [Concomitant]
     Dosage: 2.5 MG, DAILY
  8. PREVACID [Concomitant]
     Dosage: 30 MG, DAILY
  9. HYDROCHLOROTHIAZIDE [Concomitant]
     Indication: HYPERTENSION
     Dosage: 25 MG, DAILY
  10. NUCYNTA [Concomitant]
     Dosage: 75 MG, 2X/DAY
  11. NUCYNTA ER [Concomitant]
     Dosage: 100 MG, AS NEEDED
  12. ZANAFLEX [Concomitant]
     Indication: MUSCLE RELAXANT THERAPY
     Dosage: 4 MG, 2X/DAY
  13. LATANOPROST [Concomitant]
     Indication: GLAUCOMA
     Dosage: UNK

REACTIONS (3)
  - Nausea [Recovered/Resolved]
  - Headache [Recovered/Resolved]
  - Malaise [Unknown]
